FAERS Safety Report 12948754 (Version 1)
Quarter: 2016Q4

REPORT INFORMATION
  Report Type: Spontaneous
  Country: SG (occurrence: SG)
  Receive Date: 20161116
  Receipt Date: 20161116
  Transmission Date: 20170207
  Serious: Yes (Hospitalization)
  Sender: FDA-Public Use
  Company Number: SG-UNICHEM LABORATORIES LIMITED-UCM201611-000252

PATIENT
  Age: 68 Year
  Sex: Female

DRUGS (4)
  1. DONEPEZIL. [Concomitant]
     Active Substance: DONEPEZIL
     Indication: PSYCHOTIC DISORDER
  2. QUETIAPINE. [Suspect]
     Active Substance: QUETIAPINE
     Indication: PSYCHOTIC DISORDER
  3. QUETIAPINE. [Suspect]
     Active Substance: QUETIAPINE
  4. FLUVOXAMINE [Concomitant]
     Active Substance: FLUVOXAMINE

REACTIONS (1)
  - Vasculitic rash [Recovered/Resolved]
